FAERS Safety Report 10871850 (Version 2)
Quarter: 2015Q2

REPORT INFORMATION
  Report Type: Report from Study
  Country: CA (occurrence: CA)
  Receive Date: 20150226
  Receipt Date: 20150401
  Transmission Date: 20150821
  Serious: Yes (Hospitalization)
  Sender: FDA-Public Use
  Company Number: CA-ABBVIE-15K-028-1349757-00

PATIENT
  Age: 67 Year
  Sex: Male

DRUGS (2)
  1. HUMIRA [Suspect]
     Active Substance: ADALIMUMAB
     Indication: PSORIASIS
     Route: 058
     Dates: start: 20140529, end: 2015
  2. HUMIRA [Suspect]
     Active Substance: ADALIMUMAB
     Route: 058
     Dates: start: 20150326

REACTIONS (1)
  - Abdominal hernia perforation [Recovering/Resolving]

NARRATIVE: CASE EVENT DATE: 20150215
